FAERS Safety Report 6922648-2 (Version None)
Quarter: 2010Q3

REPORT INFORMATION
  Report Type: 
  Country: None (occurrence: None)
  Receive Date: 20100813
  Receipt Date: 20100802
  Transmission Date: 20110219
  Serious: Yes (Other)
  Sender: FDA-Public Use
  Company Number: PHHY2010BR22394

PATIENT
  Age: 74 Year
  Sex: Male

DRUGS (5)
  1. GLEEVEC [Suspect]
     Indication: GASTROINTESTINAL STROMAL TUMOUR
     Dosage: 4 TABLETS DAILY
     Dates: start: 20091202
  2. GLEEVEC [Suspect]
     Dosage: 2 TABLETS DAILY
  3. GLEEVEC [Suspect]
     Dosage: 1 TABLET DAILY
  4. CAPTOPRIL [Concomitant]
     Indication: HYPERTENSION
     Dosage: 2 TABLETS DAILY
  5. GLIBENCLAMIDE [Concomitant]
     Indication: DIABETES MELLITUS
     Dosage: 2 TABLETS DAILY
     Route: 048

REACTIONS (10)
  - ABNORMAL BEHAVIOUR [None]
  - AMNESIA [None]
  - CEREBRAL MICROANGIOPATHY [None]
  - CONVULSION [None]
  - DISORIENTATION [None]
  - HEMIPARESIS [None]
  - LOSS OF CONSCIOUSNESS [None]
  - MUSCLE SPASMS [None]
  - SCREAMING [None]
  - VISION BLURRED [None]
